FAERS Safety Report 5656468-6 (Version None)
Quarter: 2008Q1

REPORT INFORMATION
  Report Type: 
  Country: None (occurrence: None)
  Receive Date: 20080309
  Receipt Date: 20080116
  Transmission Date: 20080703
  Serious: No
  Sender: FDA-Public Use
  Company Number: US-BAYER-200810280BCC

PATIENT
  Age: 30 Year
  Sex: Male
  Weight: 100 kg

DRUGS (1)
  1. ALEVE [Suspect]
     Dosage: TOTAL DAILY DOSE: 220 MG  UNIT DOSE: 220 MG
     Route: 048
     Dates: start: 20080115

REACTIONS (1)
  - DRUG SCREEN FALSE POSITIVE [None]
